FAERS Safety Report 19932694 (Version 1)
Quarter: 2021Q4

REPORT INFORMATION
  Report Type: Spontaneous
  Country: US (occurrence: US)
  Receive Date: 20211007
  Receipt Date: 20211007
  Transmission Date: 20220303
  Serious: Yes (Life-Threatening, Disabling)
  Sender: FDA-Public Use
  Company Number: None

PATIENT
  Age: 41 Year
  Sex: Male
  Weight: 85.5 kg

DRUGS (1)
  1. CIPROFLOXACIN [Suspect]
     Active Substance: CIPROFLOXACIN
     Indication: Skin infection
     Route: 048
     Dates: start: 20160315, end: 20160322

REACTIONS (3)
  - Connective tissue disorder [None]
  - Muscle atrophy [None]
  - Asthenia [None]

NARRATIVE: CASE EVENT DATE: 20160315
